FAERS Safety Report 8470918-1 (Version None)
Quarter: 2012Q2

REPORT INFORMATION
  Report Type: 
  Country: None (occurrence: None)
  Receive Date: 20120323
  Receipt Date: 20110812
  Transmission Date: 20120825
  Serious: Yes (Hospitalization)
  Sender: FDA-Public Use
  Company Number: 163-21880-11081688

PATIENT
  Age: 60 Year
  Sex: Female

DRUGS (5)
  1. REVLIMID [Suspect]
     Indication: MULTIPLE MYELOMA
     Dosage: 25 MG, DAILY X 22 DAYS, PO
     Route: 048
     Dates: start: 20110701
  2. CEFDINIR [Concomitant]
  3. DEXAMETHASONE [Concomitant]
  4. HYDROCODONE/APAP (PROCET /USA/) [Concomitant]
  5. ALLOPURINOL [Concomitant]

REACTIONS (1)
  - THROMBOSIS [None]
